FAERS Safety Report 21197790 (Version 1)
Quarter: 2022Q3

REPORT INFORMATION
  Report Type: Other
  Country: AT (occurrence: AT)
  Receive Date: 20220810
  Receipt Date: 20220810
  Transmission Date: 20221026
  Serious: Yes (Other)
  Sender: FDA-Public Use
  Company Number: AT-002147023-NVSC2022AT170682

PATIENT
  Age: 5 Decade
  Sex: Female

DRUGS (3)
  1. CAPECITABINE [Suspect]
     Active Substance: CAPECITABINE
     Indication: Adenocarcinoma gastric
     Dosage: CYCLIC (THREE CYCLES)
     Route: 065
  2. OXALIPLATIN [Suspect]
     Active Substance: OXALIPLATIN
     Indication: Adenocarcinoma gastric
     Dosage: UNK, CYCLIC (THREE CYCLES)
     Route: 065
  3. EPIRUBICIN [Suspect]
     Active Substance: EPIRUBICIN
     Indication: Adenocarcinoma gastric
     Dosage: CYCLIC (THREE CYCLES)
     Route: 065

REACTIONS (5)
  - Malignant neoplasm progression [Unknown]
  - Polyneuropathy [Unknown]
  - Adenocarcinoma gastric [Unknown]
  - Fatigue [Unknown]
  - General physical health deterioration [Unknown]
